FAERS Safety Report 21084113 (Version 1)
Quarter: 2022Q3

REPORT INFORMATION
  Report Type: Report from Study
  Country: IL (occurrence: IL)
  Receive Date: 20220714
  Receipt Date: 20220714
  Transmission Date: 20221026
  Serious: Yes (Other)
  Sender: FDA-Public Use
  Company Number: IL-JAZZ-202203ILGW01243

PATIENT

DRUGS (2)
  1. EPIDIOLEX [Suspect]
     Active Substance: CANNABIDIOL
     Indication: Epilepsy
     Dosage: 10 MILLIGRAM/KILOGRAM, BID (THERE WAS A SLOW TITRATION PRIOR TO THE MAXIMAL DOSE)
     Route: 048
     Dates: start: 202112, end: 2022
  2. EPIDIOLEX [Suspect]
     Active Substance: CANNABIDIOL
     Dosage: UNK (REDUCE THE DOSE GRADUALLY UNTIL COMPLETE DISCONTINUATION. THE PATIENT IS STILL GETTING OFF TREA
     Route: 048
     Dates: start: 2022

REACTIONS (2)
  - Seizure [Unknown]
  - Drug ineffective [Unknown]

NARRATIVE: CASE EVENT DATE: 20220101
